FAERS Safety Report 7042540-5 (Version None)
Quarter: 2010Q4

REPORT INFORMATION
  Report Type: 
  Country: None (occurrence: None)
  Receive Date: 20101013
  Receipt Date: 20100420
  Transmission Date: 20110411
  Serious: No
  Sender: FDA-Public Use
  Company Number: US-ASTRAZENECA-2010SE11155

PATIENT
  Age: 74 Year
  Sex: Female
  Weight: 61.7 kg

DRUGS (2)
  1. SYMBICORT [Suspect]
     Indication: ASTHMA
     Dosage: TOTAL DAILY DOSE 160 MICROGRAM
     Route: 055
  2. SYMBICORT [Suspect]
     Route: 055

REACTIONS (4)
  - DYSPHAGIA [None]
  - DYSPHONIA [None]
  - DYSPNOEA [None]
  - THROAT IRRITATION [None]
